FAERS Safety Report 7585539-2 (Version None)
Quarter: 2011Q3

REPORT INFORMATION
  Report Type: 
  Country: None (occurrence: None)
  Receive Date: 20110701
  Receipt Date: 20110629
  Transmission Date: 20111222
  Serious: Yes (Death, Hospitalization)
  Sender: FDA-Public Use
  Company Number: US-AMGEN-USASP2011031652

PATIENT
  Sex: Female
  Weight: 44.898 kg

DRUGS (2)
  1. NPLATE [Suspect]
     Indication: IDIOPATHIC THROMBOCYTOPENIC PURPURA
     Dosage: 500 A?G, QWK
     Route: 058
     Dates: start: 20100825, end: 20110105
  2. HERCEPTIN [Concomitant]
     Dosage: 100 MG, QWK
     Dates: start: 20110105, end: 20110201

REACTIONS (2)
  - GASTROINTESTINAL HAEMORRHAGE [None]
  - METASTASES TO CENTRAL NERVOUS SYSTEM [None]
